FAERS Safety Report 19206318 (Version 1)
Quarter: 2021Q2

REPORT INFORMATION
  Report Type: Spontaneous
  Country: US (occurrence: US)
  Receive Date: 20210430
  Receipt Date: 20210430
  Transmission Date: 20210717
  Serious: Yes (Other)
  Sender: FDA-Public Use
  Company Number: None

PATIENT
  Age: 42 Year
  Sex: Female
  Weight: 68.04 kg

DRUGS (4)
  1. SYNTHROID [Suspect]
     Active Substance: LEVOTHYROXINE SODIUM
  2. LEVOTHYROXINE. [Suspect]
     Active Substance: LEVOTHYROXINE
     Indication: HYPOTHYROIDISM
     Route: 048
     Dates: start: 20070101, end: 20151101
  3. NP THYROID [Suspect]
     Active Substance: LEVOTHYROXINE\LIOTHYRONINE
  4. ARMOUR THYROID [Suspect]
     Active Substance: THYROID, PORCINE

REACTIONS (10)
  - Arthralgia [None]
  - Inflammation [None]
  - Palpitations [None]
  - Weight increased [None]
  - Alopecia [None]
  - Fatigue [None]
  - Dry skin [None]
  - Anxiety [None]
  - Depression [None]
  - Treatment failure [None]

NARRATIVE: CASE EVENT DATE: 20151101
